FAERS Safety Report 4463482-5 (Version None)
Quarter: 2004Q3

REPORT INFORMATION
  Report Type: 
  Country: None (occurrence: None)
  Receive Date: 20040928
  Receipt Date: 20040913
  Transmission Date: 20050211
  Serious: Yes (Disabling)
  Sender: FDA-Public Use
  Company Number: S04-GER-04155-01

PATIENT
  Age: 30 Year
  Sex: Female
  Weight: 48.5 kg

DRUGS (1)
  1. CIPRALEX (ESCITALOPRAM) [Suspect]
     Indication: DEPRESSION
     Dosage: 10 MG PO
     Route: 048
     Dates: start: 20031001, end: 20040128

REACTIONS (4)
  - EOSINOPHILIA [None]
  - MONOCYTOSIS [None]
  - PERONEAL NERVE PALSY [None]
  - WEIGHT INCREASED [None]
